FAERS Safety Report 8789191 (Version 1)
Quarter: 2012Q4

REPORT INFORMATION
  Report Type: Spontaneous
  Country: US (occurrence: None)
  Receive Date: 20120910
  Receipt Date: 20120910
  Transmission Date: 20130627
  Serious: Yes (Life-Threatening)
  Sender: FDA-Public Use
  Company Number: None

PATIENT
  Age: 73 Year
  Sex: Male
  Weight: 70.3 kg

DRUGS (10)
  1. REVLIMID [Suspect]
     Indication: MULTIPLE MYELOMA
     Route: 048
     Dates: start: 20110401, end: 20110831
  2. REVLIMID [Suspect]
     Route: 048
     Dates: start: 20110901, end: 20120814
  3. DEXAMETHASONE [Concomitant]
  4. ACYCLOVIR [Concomitant]
  5. MULTIVITAMINS [Concomitant]
  6. CALCIUM [Concomitant]
  7. COUMADIN [Concomitant]
  8. FLORINEF [Concomitant]
  9. METOPROLOL [Concomitant]
  10. ENOXAPARIN [Concomitant]

REACTIONS (4)
  - Muscular weakness [None]
  - Plasma cell myeloma [None]
  - Bone loss [None]
  - Progressive multifocal leukoencephalopathy [None]
